FAERS Safety Report 4978957-X (Version None)
Quarter: 2006Q2

REPORT INFORMATION
  Report Type: 
  Country: None (occurrence: None)
  Receive Date: 20060419
  Receipt Date: 20060419
  Transmission Date: 20061013
  Serious: Yes (Hospitalization, Other)
  Sender: FDA-Public Use
  Company Number: None

PATIENT
  Age: 56 Year
  Sex: Female
  Weight: 75.9 kg

DRUGS (14)
  1. AMANTADINE HCL [Suspect]
     Indication: FATIGUE
     Dosage: 100MG PO  BID
     Route: 048
     Dates: start: 20051026, end: 20060203
  2. AMANTADINE HCL [Suspect]
     Indication: MULTIPLE SCLEROSIS
     Dosage: 100MG PO  BID
     Route: 048
     Dates: start: 20051026, end: 20060203
  3. AMANTADINE HCL [Suspect]
     Indication: TREMOR
     Dosage: 100MG PO  BID
     Route: 048
     Dates: start: 20051026, end: 20060203
  4. GLATIROMER [Concomitant]
  5. ALENDRONATE SODIUM [Concomitant]
  6. ARIPIPRAZOLE [Concomitant]
  7. BUPROPION [Concomitant]
  8. CALCIUM / VIT D [Concomitant]
  9. CLONAZEPAM [Concomitant]
  10. DEPAKOTE [Concomitant]
  11. L-TYROXINE [Concomitant]
  12. POTASSIUM CHLORIDE [Concomitant]
  13. ZIPRASIDONE HCL [Concomitant]
  14. LORATADINE [Concomitant]

REACTIONS (6)
  - CONDITION AGGRAVATED [None]
  - DEMENTIA [None]
  - DEPRESSION [None]
  - HALLUCINATION, AUDITORY [None]
  - INSOMNIA [None]
  - PSYCHOTIC DISORDER [None]
